FAERS Safety Report 5806859-5 (Version None)
Quarter: 2008Q3

REPORT INFORMATION
  Report Type: 
  Country: None (occurrence: None)
  Receive Date: 20080711
  Receipt Date: 20080707
  Transmission Date: 20090109
  Serious: Yes (Hospitalization)
  Sender: FDA-Public Use
  Company Number: JP-BRISTOL-MYERS SQUIBB COMPANY-14252456

PATIENT
  Age: 83 Year
  Sex: Female

DRUGS (5)
  1. RESLIN [Suspect]
     Indication: ANXIETY DISORDER
     Route: 048
  2. PAROXETINE HCL [Suspect]
  3. DONEPEZIL HCL [Suspect]
  4. RISPERIDONE [Suspect]
     Dosage: DOSE WAS DECREASED TO 0.5 MG AND AGAIN INCREASED TO 1 MG
  5. QUETIAPINE FUMARATE [Suspect]

REACTIONS (1)
  - SEROTONIN SYNDROME [None]
